FAERS Safety Report 4386936-9 (Version None)
Quarter: 2004Q2

REPORT INFORMATION
  Report Type: 
  Country: None (occurrence: None)
  Receive Date: 20040625
  Receipt Date: 20040617
  Transmission Date: 20050107
  Serious: Yes (Hospitalization)
  Sender: FDA-Public Use
  Company Number: K200400898

PATIENT
  Age: 73 Year
  Sex: Male

DRUGS (14)
  1. ALTACE [Suspect]
     Dosage: SEE IMAGE
     Route: 048
     Dates: start: 20031215, end: 20040327
  2. ALTACE [Suspect]
     Dosage: SEE IMAGE
     Route: 048
     Dates: start: 20040101
  3. LASIX [Suspect]
     Dosage: SEE IMAGE
     Route: 048
     Dates: start: 20010310, end: 20040327
  4. LASIX [Suspect]
     Dosage: SEE IMAGE
     Route: 048
     Dates: start: 20040101
  5. APROVEL (IRBESARTAN) TABLET, 300MG [Suspect]
     Dosage: 300 MG, QD
     Route: 048
     Dates: start: 20040310, end: 20040327
  6. TENORMIN [Suspect]
     Dosage: SEE IMAGE ORAL
     Route: 048
     Dates: start: 20040301, end: 20040327
  7. TENORMIN [Suspect]
     Dosage: SEE IMAGE ORAL
     Route: 048
     Dates: start: 20040101
  8. FOLIC ACID [Concomitant]
  9. PRAVASTATIN SODIUM [Concomitant]
  10. PLAVIX [Concomitant]
  11. OMEPRAZOLE [Concomitant]
  12. CLONAZEPAM [Concomitant]
  13. HUMALOG MIX 25 (INSULIN LISPRO, INSULIN LISPRO PROTAMINE SUSPENSION) [Concomitant]
  14. FERROUS SULFATE TAB [Concomitant]

REACTIONS (5)
  - BLOOD POTASSIUM INCREASED [None]
  - HYPOVOLAEMIC SHOCK [None]
  - LOSS OF CONSCIOUSNESS [None]
  - MALAISE [None]
  - RENAL FAILURE ACUTE [None]
